FAERS Safety Report 16390456 (Version 3)
Quarter: 2019Q3

REPORT INFORMATION
  Report Type: Spontaneous
  Country: US (occurrence: US)
  Receive Date: 20190604
  Receipt Date: 20190830
  Transmission Date: 20191004
  Serious: Yes (Other)
  Sender: FDA-Public Use
  Company Number: US-PFIZER INC-2019231677

PATIENT
  Age: 61 Year
  Sex: Female
  Weight: 81 kg

DRUGS (5)
  1. PREMARIN [Suspect]
     Active Substance: ESTROGENS, CONJUGATED
     Indication: HORMONE LEVEL ABNORMAL
     Dosage: 1.25 MG, 1X/DAY
     Dates: start: 196410
  2. PREMARIN [Suspect]
     Active Substance: ESTROGENS, CONJUGATED
     Dosage: UNK
     Dates: start: 201904, end: 201905
  3. PREMARIN [Suspect]
     Active Substance: ESTROGENS, CONJUGATED
     Dosage: 1.25 MG, UNK THREE TIMES A WEEK
     Route: 048
  4. PREMARIN [Suspect]
     Active Substance: ESTROGENS, CONJUGATED
     Indication: HOT FLUSH
     Dosage: UNK
     Dates: end: 201902
  5. PREMARIN [Suspect]
     Active Substance: ESTROGENS, CONJUGATED
     Dosage: 1.25 MG, DAILY, (1 A DAY)
     Route: 048

REACTIONS (8)
  - Headache [Recovering/Resolving]
  - Intentional product misuse [Not Recovered/Not Resolved]
  - Macular degeneration [Unknown]
  - Cardiac disorder [Not Recovered/Not Resolved]
  - Eye disorder [Unknown]
  - Gait disturbance [Not Recovered/Not Resolved]
  - Asthma [Recovering/Resolving]
  - Nausea [Recovering/Resolving]

NARRATIVE: CASE EVENT DATE: 199011
